FAERS Safety Report 6661461-0 (Version None)
Quarter: 2010Q1

REPORT INFORMATION
  Report Type: 
  Country: None (occurrence: None)
  Receive Date: 20100331
  Receipt Date: 20100326
  Transmission Date: 20100710
  Serious: Yes (Death)
  Sender: FDA-Public Use
  Company Number: US-MERCK-1001USA01507

PATIENT
  Age: 73 Year
  Sex: Female

DRUGS (10)
  1. ZETIA [Suspect]
     Route: 048
  2. DOXEPIN HYDROCHLORIDE [Suspect]
     Route: 048
  3. ALPRAZOLAM [Suspect]
     Route: 048
  4. CLOPIDOGREL BISULFATE [Suspect]
     Route: 048
  5. LORAZEPAM [Concomitant]
     Route: 065
  6. PHENOBARBITAL [Concomitant]
     Route: 065
  7. ZOLPIDEM TARTRATE [Concomitant]
     Route: 065
  8. SALICYLIC ACID [Suspect]
     Route: 048
  9. ACETAMINOPHEN AND BUTALBITAL AND CAFFEINE [Suspect]
     Route: 048
  10. IRBESARTAN [Suspect]
     Route: 048

REACTIONS (2)
  - COMPLETED SUICIDE [None]
  - OVERDOSE [None]
